FAERS Safety Report 6354673-7 (Version None)
Quarter: 2009Q3

REPORT INFORMATION
  Report Type: 
  Country: None (occurrence: None)
  Receive Date: 20090914
  Receipt Date: 20090831
  Transmission Date: 20100115
  Serious: Yes (Hospitalization, Other)
  Sender: FDA-Public Use
  Company Number: US-JNJFOC-20090901237

PATIENT
  Sex: Female

DRUGS (3)
  1. REMICADE [Suspect]
     Route: 042
  2. REMICADE [Suspect]
     Indication: CROHN'S DISEASE
     Route: 042
  3. SOLU-MEDROL [Concomitant]

REACTIONS (8)
  - CELLULITIS [None]
  - ECZEMA [None]
  - ERYTHEMA [None]
  - EXCORIATION [None]
  - FOLLICULITIS [None]
  - INTESTINAL OBSTRUCTION [None]
  - PETECHIAE [None]
  - URTICARIA [None]
